FAERS Safety Report 10006250 (Version 1)
Quarter: 2014Q1

REPORT INFORMATION
  Report Type: Spontaneous
  Country: TH (occurrence: TH)
  Receive Date: 20140313
  Receipt Date: 20140313
  Transmission Date: 20141002
  Serious: Yes (Other)
  Sender: FDA-Public Use
  Company Number: TH-PERRIGO-14TH002269

PATIENT
  Age: 6 Month
  Sex: Male
  Weight: 4.43 kg

DRUGS (2)
  1. AMILORIDE HYDROCHLORIDE [Suspect]
     Indication: NEPHROGENIC DIABETES INSIPIDUS
     Dosage: 0.2 MG/KG, QD
     Route: 065
  2. HYDROCHLOROTHIAZIDE [Suspect]
     Indication: NEPHROGENIC DIABETES INSIPIDUS
     Dosage: 2 MG/KG, QD
     Route: 065

REACTIONS (6)
  - Acute prerenal failure [Recovered/Resolved]
  - Dehydration [Recovered/Resolved]
  - Weight decreased [Recovered/Resolved]
  - Urine sodium increased [Recovered/Resolved]
  - Hyponatraemia [Recovered/Resolved]
  - Hypochloraemia [Recovered/Resolved]
